FAERS Safety Report 6540604-3 (Version None)
Quarter: 2010Q1

REPORT INFORMATION
  Report Type: 
  Country: None (occurrence: None)
  Receive Date: 20100112
  Receipt Date: 20091023
  Transmission Date: 20100710
  Serious: No
  Sender: FDA-Public Use
  Company Number: 2009-00687

PATIENT
  Age: 41 Year
  Sex: Female
  Weight: 52.1637 kg

DRUGS (3)
  1. COLD REMEDY ORAL MIST [Suspect]
     Dosage: EVERY 3 HRS - 2 DAYS
     Dates: start: 20091021, end: 20091023
  2. CYTONEL [Concomitant]
  3. LEVOXYL [Concomitant]

REACTIONS (1)
  - AGEUSIA [None]
